FAERS Safety Report 6251221-7 (Version None)
Quarter: 2009Q2

REPORT INFORMATION
  Report Type: 
  Country: None (occurrence: None)
  Receive Date: 20090626
  Receipt Date: 20090611
  Transmission Date: 20091009
  Serious: Yes (Death, Hospitalization)
  Sender: FDA-Public Use
  Company Number: 2009000922

PATIENT
  Age: 62 Year
  Sex: Male
  Weight: 53 kg

DRUGS (8)
  1. ERLOTINIB  (TABLET) [Suspect]
     Indication: NON-SMALL CELL LUNG CANCER
     Dosage: 150 MG, QD, ORAL
     Route: 048
     Dates: start: 20090211, end: 20090303
  2. CP-751, 871 [Suspect]
     Indication: NON-SMALL CELL LUNG CANCER
     Dosage: 1160 M, D1, D2 Q3W, INTRAVENOUS
     Route: 042
     Dates: start: 20090210, end: 20090211
  3. OXYCODONE HCL [Concomitant]
  4. MEGESTROL ACETATE [Concomitant]
  5. DIHYDROCODEINE BITARTRATE INJ [Concomitant]
  6. MINOCYCLINE HYDROCHLORIDE [Concomitant]
  7. FENTANYL-100 [Concomitant]
  8. METOCLOPRAMIDE HYDROCHLORIDE [Concomitant]

REACTIONS (8)
  - ALANINE AMINOTRANSFERASE INCREASED [None]
  - ASPARTATE AMINOTRANSFERASE INCREASED [None]
  - CACHEXIA [None]
  - CYANOSIS [None]
  - DYSPHAGIA [None]
  - FALL [None]
  - GENERAL PHYSICAL HEALTH DETERIORATION [None]
  - OBSTRUCTIVE AIRWAYS DISORDER [None]
